FAERS Safety Report 23642938 (Version 1)
Quarter: 2024Q1

REPORT INFORMATION
  Report Type: Report from Study
  Country: CA (occurrence: CA)
  Receive Date: 20240318
  Receipt Date: 20240318
  Transmission Date: 20240410
  Serious: Yes (Other)
  Sender: FDA-Public Use
  Company Number: CA-TAKEDA-2024TUS022758

PATIENT
  Sex: Female

DRUGS (4)
  1. VEDOLIZUMAB [Suspect]
     Active Substance: VEDOLIZUMAB
     Indication: Colitis ulcerative
     Dosage: 300 MILLIGRAM
     Route: 042
     Dates: start: 20220210
  2. HUMIRA [Concomitant]
     Active Substance: ADALIMUMAB
     Dosage: 40 MILLIGRAM, 1/WEEK
     Route: 058
     Dates: start: 2013
  3. Salofalk [Concomitant]
     Dosage: 4000 MILLIGRAM, QD
     Route: 048
  4. Salofalk [Concomitant]
     Dosage: 1 GRAM, BID
     Dates: end: 2022

REACTIONS (6)
  - Colitis microscopic [Unknown]
  - Large intestine polyp [Unknown]
  - Rectal polyp [Unknown]
  - COVID-19 [Unknown]
  - Skin discolouration [Unknown]
  - Haemorrhoids [Unknown]
